FAERS Safety Report 18164696 (Version 2)
Quarter: 2020Q4

REPORT INFORMATION
  Report Type: Report from Study
  Country: None (occurrence: US)
  Receive Date: 20200819
  Receipt Date: 20201021
  Transmission Date: 20210113
  Serious: Yes (Hospitalization, Other)
  Sender: FDA-Public Use
  Company Number: US-ABBVIE-20K-163-3466628-00

PATIENT
  Sex: Female
  Weight: 62.2 kg

DRUGS (2)
  1. HUMIRA [Suspect]
     Active Substance: ADALIMUMAB
     Indication: COLITIS ULCERATIVE
     Dosage: CITRATE FREE
     Route: 058
     Dates: start: 20051208
  2. HUMIRA [Suspect]
     Active Substance: ADALIMUMAB
     Indication: CROHN^S DISEASE

REACTIONS (9)
  - Intestinal anastomosis [Unknown]
  - Gastric operation [Unknown]
  - Cystitis [Unknown]
  - Intestinal obstruction [Unknown]
  - Vaginal polyp [Unknown]
  - Diarrhoea [Unknown]
  - Vaginal haemorrhage [Unknown]
  - Weight decreased [Unknown]
  - Postoperative adhesion [Unknown]
